FAERS Safety Report 8388236-9 (Version None)
Quarter: 2012Q2

REPORT INFORMATION
  Report Type: 
  Country: None (occurrence: None)
  Receive Date: 20120525
  Receipt Date: 20120509
  Transmission Date: 20120825
  Serious: Yes (Other)
  Sender: FDA-Public Use
  Company Number: IE-PFIZER INC-2012126877

PATIENT
  Age: 83 Year
  Sex: Male

DRUGS (4)
  1. CORDARONE [Interacting]
     Dosage: 6 DF, UNK
     Route: 048
     Dates: start: 20120101, end: 20120104
  2. SOLIAN [Interacting]
     Dosage: 7 DF, UNK
     Route: 048
     Dates: start: 20120101, end: 20120104
  3. CORDARONE [Suspect]
     Indication: ATRIAL FIBRILLATION
     Dosage: 600 MG, UNK
     Route: 048
     Dates: start: 20111230
  4. CORDARONE [Interacting]
     Dosage: 200 MG, UNK
     Route: 048
     Dates: end: 20120117

REACTIONS (4)
  - DRUG INTERACTION [None]
  - DRUG DISPENSING ERROR [None]
  - SOMNOLENCE [None]
  - ATRIAL FIBRILLATION [None]
